APPROVED DRUG PRODUCT: AMLODIPINE AND OLMESARTAN MEDOXOMIL
Active Ingredient: AMLODIPINE BESYLATE; OLMESARTAN MEDOXOMIL
Strength: EQ 5MG BASE;40MG
Dosage Form/Route: TABLET;ORAL
Application: A202933 | Product #002
Applicant: TORRENT PHARMACEUTICALS LTD
Approved: Nov 25, 2016 | RLD: No | RS: No | Type: DISCN